FAERS Safety Report 25333274 (Version 4)
Quarter: 2025Q4

REPORT INFORMATION
  Report Type: Report from Study
  Country: EU (occurrence: EU)
  Receive Date: 20250519
  Receipt Date: 20251029
  Transmission Date: 20260118
  Serious: Yes (Hospitalization, Other)
  Sender: NOVARTIS
  Company Number: EU-002147023-NVSC2025FR072244

PATIENT
  Sex: Female
  Weight: 73 kg

DRUGS (4)
  1. KISQALI [Suspect]
     Active Substance: RIBOCICLIB SUCCINATE
     Indication: Hormone receptor positive HER2 negative breast cancer
     Dosage: 600 MG, QD
     Route: 048
     Dates: start: 20250402, end: 20250419
  2. KISQALI [Suspect]
     Active Substance: RIBOCICLIB SUCCINATE
     Dosage: UNK
     Route: 048
     Dates: start: 20250420, end: 20250428
  3. KISQALI [Suspect]
     Active Substance: RIBOCICLIB SUCCINATE
     Dosage: 600 MG
     Route: 048
     Dates: start: 20250429, end: 20250812
  4. KISQALI [Suspect]
     Active Substance: RIBOCICLIB SUCCINATE
     Dosage: UNK
     Route: 048

REACTIONS (2)
  - Peripheral ischaemia [Recovered/Resolved]
  - Electrocardiogram QT prolonged [Recovered/Resolved]

NARRATIVE: CASE EVENT DATE: 20250419
